FAERS Safety Report 21547014 (Version 5)
Quarter: 2023Q1

REPORT INFORMATION
  Report Type: Spontaneous
  Country: NO (occurrence: NO)
  Receive Date: 20221103
  Receipt Date: 20230112
  Transmission Date: 20230417
  Serious: Yes (Hospitalization, Other)
  Sender: FDA-Public Use
  Company Number: NO-PFIZER INC-202201020512

PATIENT
  Age: 61 Year
  Sex: Female
  Weight: 50 kg

DRUGS (5)
  1. VENLAFAXINE HYDROCHLORIDE [Suspect]
     Active Substance: VENLAFAXINE HYDROCHLORIDE
     Indication: Depression
     Dosage: UNK
     Route: 065
     Dates: start: 202109, end: 202210
  2. VENLAFAXINE HYDROCHLORIDE [Suspect]
     Active Substance: VENLAFAXINE HYDROCHLORIDE
     Dosage: (WAS GRADUALLY INCREASED TO 375MG)
     Route: 048
     Dates: start: 202109, end: 202210
  3. VENLAFAXINE HYDROCHLORIDE [Suspect]
     Active Substance: VENLAFAXINE HYDROCHLORIDE
     Dosage: (GRADUALLY REDUCED)
     Route: 065
     Dates: start: 202209, end: 202210
  4. Paralgin forte [Concomitant]
     Dosage: (FOR SEVERAL YEARS UNTIL 4 TABLETS)
     Route: 065
  5. OXAZEPAM [Concomitant]
     Active Substance: OXAZEPAM
     Dosage: (SEVERAL YEARS UNTIL ONE TABLET)
     Route: 065

REACTIONS (5)
  - Dehydration [Unknown]
  - Weight decreased [Recovering/Resolving]
  - Ageusia [Recovering/Resolving]
  - Dysgeusia [Not Recovered/Not Resolved]
  - Decreased appetite [Not Recovered/Not Resolved]
